FAERS Safety Report 6974774-X (Version None)
Quarter: 2010Q3

REPORT INFORMATION
  Report Type: 
  Country: None (occurrence: None)
  Receive Date: 20100824
  Receipt Date: 20100622
  Transmission Date: 20110219
  Serious: No
  Sender: FDA-Public Use
  Company Number: 310501

PATIENT
  Age: 75 Year
  Sex: Female

DRUGS (3)
  1. VICTOZA [Suspect]
     Indication: TYPE 2 DIABETES MELLITUS
     Dosage: 0.6 SUBCUTANEOUS ; 1.2 U, QD, SUBCUTANEOUS ; 0.6 SUBCUTANEOUS
     Route: 058
     Dates: start: 20100601, end: 20100601
  2. VICTOZA [Suspect]
     Indication: TYPE 2 DIABETES MELLITUS
     Dosage: 0.6 SUBCUTANEOUS ; 1.2 U, QD, SUBCUTANEOUS ; 0.6 SUBCUTANEOUS
     Route: 058
     Dates: start: 20100621, end: 20100601
  3. VICTOZA [Suspect]
     Indication: TYPE 2 DIABETES MELLITUS
     Dosage: 0.6 SUBCUTANEOUS ; 1.2 U, QD, SUBCUTANEOUS ; 0.6 SUBCUTANEOUS
     Route: 058
     Dates: start: 20100601

REACTIONS (1)
  - DIARRHOEA [None]
